FAERS Safety Report 4684829-0 (Version None)
Quarter: 2005Q2

REPORT INFORMATION
  Report Type: 
  Country: None (occurrence: None)
  Receive Date: 20050531
  Receipt Date: 20041216
  Transmission Date: 20051028
  Serious: Yes (Other)
  Sender: FDA-Public Use
  Company Number: USA041286365

PATIENT
  Age: 86 Year
  Sex: Female

DRUGS (2)
  1. ZYPREXA [Suspect]
     Indication: SCHIZOPHRENIA
     Dosage: 25 MG
     Dates: start: 20000101
  2. TRAZODONE [Concomitant]

REACTIONS (9)
  - BLOOD GLUCOSE INCREASED [None]
  - CARDIAC FAILURE CONGESTIVE [None]
  - LETHARGY [None]
  - MITRAL VALVE DISEASE [None]
  - OXYGEN SATURATION DECREASED [None]
  - PRESCRIBED OVERDOSE [None]
  - PULSE ABNORMAL [None]
  - SOMNOLENCE [None]
  - WEIGHT INCREASED [None]
